FAERS Safety Report 7928877-3 (Version None)
Quarter: 2011Q4

REPORT INFORMATION
  Report Type: 
  Country: None (occurrence: None)
  Receive Date: 20111118
  Receipt Date: 20111104
  Transmission Date: 20120403
  Serious: Yes (Other)
  Sender: FDA-Public Use
  Company Number: BR-WATSON-2011-18422

PATIENT
  Age: 20 Year
  Sex: Male

DRUGS (2)
  1. AZATHIOPRINE [Suspect]
     Indication: IMMUNOSUPPRESSION
     Dosage: STANDARD MAINTENANCE DOSE
     Route: 065
  2. PREDNISONE TAB [Suspect]
     Indication: IMMUNOSUPPRESSION
     Dosage: STANDARD MAINTENANCE DOSE
     Route: 065

REACTIONS (2)
  - CHRONIC MYELOID LEUKAEMIA [None]
  - STREPTOCOCCAL SEPSIS [None]
